FAERS Safety Report 16765088 (Version 1)
Quarter: 2019Q3

REPORT INFORMATION
  Report Type: Spontaneous
  Country: IT (occurrence: IT)
  Receive Date: 20190903
  Receipt Date: 20190903
  Transmission Date: 20191005
  Serious: Yes (Other)
  Sender: FDA-Public Use
  Company Number: IT-AMGEN-ITASP2019138292

PATIENT
  Age: 46 Year
  Sex: Male

DRUGS (2)
  1. CINACALCET HCL [Suspect]
     Active Substance: CINACALCET HYDROCHLORIDE
     Indication: BLOOD PARATHYROID HORMONE INCREASED
     Dosage: 180 MILLIGRAM, QD
     Route: 065
  2. CINACALCET HCL [Suspect]
     Active Substance: CINACALCET HYDROCHLORIDE
     Indication: BLOOD CALCIUM INCREASED
     Dosage: 30 MILLIGRAM, QD
     Route: 065

REACTIONS (5)
  - Renal impairment [Unknown]
  - Hepatic cirrhosis [Unknown]
  - Off label use [Unknown]
  - Diabetes mellitus [Unknown]
  - Blood calcium increased [Recovering/Resolving]
